FAERS Safety Report 7860012-2 (Version None)
Quarter: 2011Q4

REPORT INFORMATION
  Report Type: 
  Country: None (occurrence: None)
  Receive Date: 20111025
  Receipt Date: 20111010
  Transmission Date: 20120403
  Serious: Yes (Hospitalization, Other)
  Sender: FDA-Public Use
  Company Number: 2011MA004521

PATIENT
  Sex: Male
  Weight: 72.5755 kg

DRUGS (24)
  1. HYDROCHLOROTHIAZIDE [Concomitant]
  2. AZITHROMYCIN [Concomitant]
  3. METROGEL [Concomitant]
  4. OMACOR [Concomitant]
  5. PREVACID [Concomitant]
  6. ASPIRIN [Concomitant]
  7. GAVISCON [Concomitant]
  8. OMEPRAZOLE [Concomitant]
  9. ALTACE [Concomitant]
  10. CYMBALTA [Concomitant]
  11. LEVAQUIN [Concomitant]
  12. PLAVIX [Concomitant]
  13. SCOPOLAMINE [Concomitant]
  14. NITROGLYCERIN SPRAY [Concomitant]
  15. OMEPRAZOLE [Concomitant]
  16. ZANTAC [Concomitant]
  17. LOVASTATIN [Concomitant]
  18. METOCLOPRAMIDE [Suspect]
     Indication: REGURGITATION
     Dosage: 10 MG;BID;PO
     Route: 048
     Dates: start: 20070105, end: 20101101
  19. METOCLOPRAMIDE [Suspect]
     Indication: GASTROOESOPHAGEAL REFLUX DISEASE
     Dosage: 10 MG;BID;PO
     Route: 048
     Dates: start: 20070105, end: 20101101
  20. FLOMAX [Concomitant]
  21. NEXIUM [Concomitant]
  22. NUVIGIL [Concomitant]
  23. TERAZOSIN HCL [Concomitant]
  24. VYTORIN [Concomitant]

REACTIONS (8)
  - FEELING ABNORMAL [None]
  - DRY MOUTH [None]
  - TREMOR [None]
  - PAIN [None]
  - EMOTIONAL DISORDER [None]
  - TARDIVE DYSKINESIA [None]
  - ECONOMIC PROBLEM [None]
  - ANXIETY [None]
